FAERS Safety Report 24772507 (Version 1)
Quarter: 2024Q4

REPORT INFORMATION
  Report Type: Report from Study
  Country: IL (occurrence: IL)
  Receive Date: 20241224
  Receipt Date: 20241224
  Transmission Date: 20250115
  Serious: Yes (Hospitalization)
  Sender: ABBVIE
  Company Number: IL-ABBVIE-6052294

PATIENT
  Age: 64 Year
  Sex: Female

DRUGS (1)
  1. SKYRIZI [Suspect]
     Active Substance: RISANKIZUMAB-RZAA
     Indication: Crohn^s disease
     Dosage: OBI FORM STRENGTH: 360 MILLIGRAM
     Route: 058
     Dates: start: 20231001

REACTIONS (11)
  - Loss of consciousness [Unknown]
  - Gastrointestinal motility disorder [Not Recovered/Not Resolved]
  - Confusional state [Unknown]
  - Malaise [Not Recovered/Not Resolved]
  - Asthenia [Not Recovered/Not Resolved]
  - Dysstasia [Not Recovered/Not Resolved]
  - Device issue [Unknown]
  - Dehydration [Not Recovered/Not Resolved]
  - Feeling cold [Not Recovered/Not Resolved]
  - Dizziness [Not Recovered/Not Resolved]
  - Emotional distress [Unknown]

NARRATIVE: CASE EVENT DATE: 20240101
